FAERS Safety Report 24555170 (Version 1)
Quarter: 2024Q4

REPORT INFORMATION
  Report Type: Spontaneous
  Country: NL (occurrence: NL)
  Receive Date: 20241028
  Receipt Date: 20241028
  Transmission Date: 20250114
  Serious: Yes (Other)
  Sender: RANBAXY
  Company Number: NL-SUN PHARMACEUTICAL INDUSTRIES LTD-2024RR-475558

PATIENT
  Age: 60 Year
  Sex: Female
  Weight: 60 kg

DRUGS (1)
  1. PREGABALIN [Suspect]
     Active Substance: PREGABALIN
     Indication: Neuralgia
     Dosage: 1 CAPSULE IN THE MORNING, 2 CAPSULES BEFORE GOING TO SLEEP
     Route: 065
     Dates: start: 20240828

REACTIONS (4)
  - Dermatitis bullous [Unknown]
  - Back pain [Unknown]
  - Rash pruritic [Unknown]
  - Paraesthesia [Unknown]
